FAERS Safety Report 21558698 (Version 1)
Quarter: 2022Q4

REPORT INFORMATION
  Report Type: Other
  Country: GB (occurrence: GB)
  Receive Date: 20221107
  Receipt Date: 20221107
  Transmission Date: 20230113
  Serious: Yes (Hospitalization, Other)
  Sender: FDA-Public Use
  Company Number: GB-CELLTRION INC.-2022GB018399

PATIENT

DRUGS (7)
  1. RITUXIMAB [Suspect]
     Active Substance: RITUXIMAB
     Indication: Lymphoma
     Dosage: 60MG PER CYCLE; ;
     Dates: start: 20220414, end: 20221025
  2. CYCLOPHOSPHAMIDE [Concomitant]
     Active Substance: CYCLOPHOSPHAMIDE
     Indication: Lymphoma
     Dosage: UNK
     Dates: start: 20220328, end: 20220926
  3. DOCUSATE [Concomitant]
     Active Substance: DOCUSATE
     Indication: Adverse drug reaction
     Dosage: UNK
     Dates: start: 20220328, end: 20220828
  4. LANSOPRAZOLE [Concomitant]
     Active Substance: LANSOPRAZOLE
     Indication: Chemotherapy
     Dosage: UNK
     Dates: start: 20220328, end: 20220826
  5. ONDANSETRON [Concomitant]
     Active Substance: ONDANSETRON
     Indication: Nausea
     Dosage: UNK
     Dates: start: 20220328, end: 20220826
  6. PREDNISOLONE [Concomitant]
     Active Substance: PREDNISOLONE
     Indication: Chemotherapy side effect prophylaxis
     Dosage: UNK
     Dates: start: 20220328, end: 20220826
  7. VINCRISTINE [Concomitant]
     Active Substance: VINCRISTINE
     Indication: Lymphoma
     Dosage: UNK
     Dates: start: 20220328, end: 20220826

REACTIONS (5)
  - Capillary nail refill test [Recovered/Resolved]
  - Obstructive airways disorder [Recovered/Resolved]
  - Dyspnoea [Recovered/Resolved]
  - Neuropathy peripheral [Recovered/Resolved]
  - Pyrexia [Unknown]

NARRATIVE: CASE EVENT DATE: 20221015
